FAERS Safety Report 10203113 (Version 5)
Quarter: 2014Q4

REPORT INFORMATION
  Report Type: Spontaneous
  Country: JP (occurrence: JP)
  Receive Date: 20140529
  Receipt Date: 20141112
  Transmission Date: 20150528
  Serious: Yes (Death, Other)
  Sender: FDA-Public Use
  Company Number: PHHY2014JP030306

PATIENT
  Age: 55 Year
  Sex: Male
  Weight: 72.9 kg

DRUGS (14)
  1. GLIVEC [Suspect]
     Active Substance: IMATINIB MESYLATE
     Dosage: 600 MG, UNK
     Route: 048
     Dates: start: 200903, end: 200907
  2. DASATINIB [Suspect]
     Active Substance: DASATINIB
     Dosage: 160 MG, PER DAY
     Route: 048
  3. VINCRISTINE SULFATE. [Concomitant]
     Active Substance: VINCRISTINE SULFATE
     Dosage: 2 MG, PER DAY
  4. DASATINIB [Suspect]
     Active Substance: DASATINIB
     Dosage: 140 MG, PER DAY
     Route: 048
  5. DEXAMETHASONE. [Suspect]
     Active Substance: DEXAMETHASONE
     Indication: PRODUCT USED FOR UNKNOWN INDICATION
     Dosage: 3.3 MG, UNK
     Route: 041
  6. PREDNISOLONE. [Concomitant]
     Active Substance: PREDNISOLONE
     Indication: CHRONIC MYELOID LEUKAEMIA
     Dosage: 100 MG, PER DAY
     Dates: start: 20090410
  7. GLIVEC [Suspect]
     Active Substance: IMATINIB MESYLATE
     Dosage: 400 MG, UNK
     Route: 048
     Dates: start: 2009, end: 2009
  8. METHOTREXATE [Suspect]
     Active Substance: METHOTREXATE
     Indication: PRODUCT USED FOR UNKNOWN INDICATION
     Dosage: 01 G, PER DAY
     Route: 037
  9. GLIVEC [Suspect]
     Active Substance: IMATINIB MESYLATE
     Indication: CHRONIC MYELOID LEUKAEMIA
     Dosage: 600 MG, UNK
     Route: 048
     Dates: start: 20090410, end: 2009
  10. CYTARABINE. [Suspect]
     Active Substance: CYTARABINE
     Indication: PRODUCT USED FOR UNKNOWN INDICATION
     Dosage: 40 MG, UNK
     Route: 041
  11. VINCRISTINE SULFATE. [Concomitant]
     Active Substance: VINCRISTINE SULFATE
     Indication: CHRONIC MYELOID LEUKAEMIA
     Dosage: 2 MG, PER DAY
     Dates: start: 20090410
  12. PREDNISOLONE. [Concomitant]
     Active Substance: PREDNISOLONE
     Dosage: 100 MG, PER DAY
  13. METHOTREXATE [Suspect]
     Active Substance: METHOTREXATE
     Dosage: 15 MG, UNK
     Route: 037
  14. DASATINIB [Suspect]
     Active Substance: DASATINIB
     Indication: PRODUCT USED FOR UNKNOWN INDICATION
     Dosage: 100 MG, PER DAY
     Route: 048

REACTIONS (12)
  - Dysgeusia [Recovered/Resolved]
  - Therapeutic response decreased [Not Recovered/Not Resolved]
  - Toxicity to various agents [Unknown]
  - Chronic myeloid leukaemia transformation [Fatal]
  - Leukaemia recurrent [Unknown]
  - Hypoaesthesia [Recovered/Resolved]
  - Blood creatine phosphokinase increased [Recovered/Resolved]
  - Drug ineffective [Unknown]
  - Malignant neoplasm progression [Unknown]
  - Central nervous system leukaemia [Unknown]
  - Oedema [Recovered/Resolved]
  - Chronic myeloid leukaemia [Unknown]

NARRATIVE: CASE EVENT DATE: 2009
